FAERS Safety Report 11768314 (Version 4)
Quarter: 2018Q1

REPORT INFORMATION
  Report Type: Spontaneous
  Country: US (occurrence: US)
  Receive Date: 20151123
  Receipt Date: 20180111
  Transmission Date: 20180508
  Serious: Yes (Hospitalization, Other)
  Sender: FDA-Public Use
  Company Number: US-JNJFOC-20151119372

PATIENT
  Age: 71 Year
  Sex: Male
  Weight: 88.9 kg

DRUGS (5)
  1. TIKOSYN [Suspect]
     Active Substance: DOFETILIDE
     Indication: ATRIAL FIBRILLATION
     Route: 048
     Dates: start: 2012
  2. XARELTO [Suspect]
     Active Substance: RIVAROXABAN
     Indication: ANTICOAGULANT THERAPY
     Route: 048
     Dates: start: 2012, end: 201507
  3. TIKOSYN [Suspect]
     Active Substance: DOFETILIDE
     Indication: ATRIAL FIBRILLATION
     Dosage: ONCE IN THE MORNING AND ONCE IN THE EVENING
     Route: 048
  4. ASPIRIN. [Suspect]
     Active Substance: ASPIRIN
     Indication: ANTICOAGULANT THERAPY
     Dosage: TAKING SINCE 40S OR 50S
     Route: 065
     Dates: end: 201507
  5. PLAVIX [Suspect]
     Active Substance: CLOPIDOGREL BISULFATE
     Indication: ANTICOAGULANT THERAPY
     Dosage: STARTED IN 2012 OR 2013
     Route: 065
     Dates: end: 201507

REACTIONS (3)
  - Haemorrhagic stroke [Recovering/Resolving]
  - Atrial fibrillation [Unknown]
  - Memory impairment [Unknown]

NARRATIVE: CASE EVENT DATE: 201507
